FAERS Safety Report 10178482 (Version 6)
Quarter: 2014Q3

REPORT INFORMATION
  Report Type: Spontaneous
  Country: JP (occurrence: JP)
  Receive Date: 20140519
  Receipt Date: 20140709
  Transmission Date: 20150326
  Serious: Yes (Death)
  Sender: FDA-Public Use
  Company Number: JP-JNJFOC-20140509121

PATIENT
  Age: 27 Year
  Sex: Female

DRUGS (9)
  1. XEPLION [Suspect]
     Active Substance: PALIPERIDONE PALMITATE
     Indication: SCHIZOPHRENIA
     Route: 030
     Dates: start: 20140418, end: 20140418
  2. LENDORMIN (BROTIZOLAM) [Concomitant]
     Indication: SCHIZOPHRENIA
     Route: 048
     Dates: start: 20130315, end: 20140422
  3. CRESTOR [Concomitant]
     Active Substance: ROSUVASTATIN CALCIUM
     Indication: HYPERCHOLESTEROLAEMIA
     Route: 048
     Dates: start: 20121120, end: 20140422
  4. ABILIFY [Concomitant]
     Active Substance: ARIPIPRAZOLE
     Indication: SCHIZOPHRENIA
     Route: 048
     Dates: start: 20101201, end: 20140422
  5. TRAZODONE [Concomitant]
     Active Substance: TRAZODONE HYDROCHLORIDE
     Indication: PRODUCT USED FOR UNKNOWN INDICATION
     Route: 048
  6. VEGETAMIN A [Suspect]
     Active Substance: CHLORPROMAZINE HYDROCHLORIDE\PHENOBARBITAL\PROMETHAZINE
     Indication: SCHIZOPHRENIA
     Route: 048
     Dates: start: 20110112, end: 20140422
  7. XEPLION [Suspect]
     Active Substance: PALIPERIDONE PALMITATE
     Indication: SCHIZOPHRENIA
     Route: 030
     Dates: start: 20140305, end: 20140305
  8. EURODIN (ESTAZOLAM) [Concomitant]
     Indication: SCHIZOPHRENIA
     Route: 048
     Dates: start: 20110414, end: 20140422
  9. DORAL [Concomitant]
     Active Substance: QUAZEPAM
     Indication: SCHIZOPHRENIA
     Route: 048
     Dates: start: 20130911, end: 20140422

REACTIONS (4)
  - Acute respiratory failure [Fatal]
  - Vomiting [Fatal]
  - Asphyxia [Fatal]
  - Altered state of consciousness [Fatal]

NARRATIVE: CASE EVENT DATE: 20140423
